FAERS Safety Report 12758082 (Version 1)
Quarter: 2016Q3

REPORT INFORMATION
  Report Type: Report from Study
  Country: US (occurrence: US)
  Receive Date: 20160919
  Receipt Date: 20160919
  Transmission Date: 20161109
  Serious: Yes (Other)
  Sender: FDA-Public Use
  Company Number: US-ROCHE-1828542

PATIENT
  Age: 40 Year
  Sex: Male

DRUGS (77)
  1. BEVACIZUMAB [Suspect]
     Active Substance: BEVACIZUMAB
     Dosage: COURSE ID : 17
     Route: 042
     Dates: start: 20110128, end: 20130717
  2. TEMSIROLIMUS [Suspect]
     Active Substance: TEMSIROLIMUS
     Dosage: COURSE ID: 12
     Route: 042
     Dates: start: 20100827, end: 20130717
  3. TEMSIROLIMUS [Suspect]
     Active Substance: TEMSIROLIMUS
     Dosage: COURSE ID:24
     Route: 042
     Dates: start: 20110819
  4. TEMSIROLIMUS [Suspect]
     Active Substance: TEMSIROLIMUS
     Dosage: COURSE ID:32
     Route: 042
     Dates: start: 20120404
  5. TEMSIROLIMUS [Suspect]
     Active Substance: TEMSIROLIMUS
     Dosage: COURSE ID:34
     Route: 042
     Dates: start: 20120530
  6. TEMSIROLIMUS [Suspect]
     Active Substance: TEMSIROLIMUS
     Dosage: COURSE ID:37
     Route: 042
     Dates: start: 20120822
  7. TEMSIROLIMUS [Suspect]
     Active Substance: TEMSIROLIMUS
     Dosage: COURSE ID:41
     Route: 042
     Dates: start: 20121212
  8. BEVACIZUMAB [Suspect]
     Active Substance: BEVACIZUMAB
     Dosage: COURSE ID : 14
     Route: 042
     Dates: start: 20101022, end: 20130717
  9. BEVACIZUMAB [Suspect]
     Active Substance: BEVACIZUMAB
     Dosage: COURSE ID : 16
     Route: 042
     Dates: start: 20101217, end: 20130717
  10. BEVACIZUMAB [Suspect]
     Active Substance: BEVACIZUMAB
     Dosage: COURSE ID :25
     Route: 042
     Dates: start: 20110916, end: 20130717
  11. TEMSIROLIMUS [Suspect]
     Active Substance: TEMSIROLIMUS
     Dosage: COURSE ID: 4
     Route: 042
     Dates: start: 20100114, end: 20130717
  12. TEMSIROLIMUS [Suspect]
     Active Substance: TEMSIROLIMUS
     Dosage: COURSE ID:42
     Route: 042
     Dates: start: 20130109
  13. TEMSIROLIMUS [Suspect]
     Active Substance: TEMSIROLIMUS
     Dosage: COURSE ID:45
     Route: 042
     Dates: start: 20130403
  14. TEMSIROLIMUS [Suspect]
     Active Substance: TEMSIROLIMUS
     Dosage: COURSE ID:4
     Route: 042
  15. BEVACIZUMAB [Suspect]
     Active Substance: BEVACIZUMAB
     Dosage: COURSE ID : 8
     Route: 042
     Dates: start: 20100507, end: 20130717
  16. BEVACIZUMAB [Suspect]
     Active Substance: BEVACIZUMAB
     Dosage: COURSE ID : 10
     Route: 042
     Dates: start: 20100702, end: 20130717
  17. BEVACIZUMAB [Suspect]
     Active Substance: BEVACIZUMAB
     Dosage: COURSE ID :22
     Route: 042
     Dates: start: 20110624, end: 20130717
  18. TEMSIROLIMUS [Suspect]
     Active Substance: TEMSIROLIMUS
     Dosage: COURSE ID: 7
     Route: 042
     Dates: start: 20100409, end: 20130717
  19. TEMSIROLIMUS [Suspect]
     Active Substance: TEMSIROLIMUS
     Dosage: COURSE ID: 11
     Route: 042
     Dates: start: 20100730, end: 20130717
  20. TEMSIROLIMUS [Suspect]
     Active Substance: TEMSIROLIMUS
     Dosage: COURSE ID: 13
     Route: 042
     Dates: start: 20100924, end: 20130717
  21. TEMSIROLIMUS [Suspect]
     Active Substance: TEMSIROLIMUS
     Dosage: COURSE ID:18
     Route: 042
     Dates: start: 20110225, end: 20130717
  22. TEMSIROLIMUS [Suspect]
     Active Substance: TEMSIROLIMUS
     Dosage: COURSE ID:21
     Route: 042
     Dates: start: 20110520
  23. TEMSIROLIMUS [Suspect]
     Active Substance: TEMSIROLIMUS
     Dosage: COURSE ID:22
     Route: 042
     Dates: start: 20110624
  24. TEMSIROLIMUS [Suspect]
     Active Substance: TEMSIROLIMUS
     Dosage: COURSE ID:23
     Route: 042
     Dates: start: 20110722
  25. TEMSIROLIMUS [Suspect]
     Active Substance: TEMSIROLIMUS
     Dosage: COURSE ID:29
     Route: 042
     Dates: start: 20120111
  26. TEMSIROLIMUS [Suspect]
     Active Substance: TEMSIROLIMUS
     Dosage: COURSE ID:31
     Route: 042
     Dates: start: 20120307
  27. BEVACIZUMAB [Suspect]
     Active Substance: BEVACIZUMAB
     Indication: MALIGNANT NEOPLASM OF ISLETS OF LANGERHANS
     Dosage: COURSE ID : 1
     Route: 042
     Dates: start: 20091023, end: 20130717
  28. BEVACIZUMAB [Suspect]
     Active Substance: BEVACIZUMAB
     Dosage: COURSE ID : 2
     Route: 042
     Dates: start: 20091120, end: 20130717
  29. BEVACIZUMAB [Suspect]
     Active Substance: BEVACIZUMAB
     Dosage: COURSE ID : 4
     Route: 042
     Dates: start: 20100114, end: 20130717
  30. BEVACIZUMAB [Suspect]
     Active Substance: BEVACIZUMAB
     Dosage: COURSE ID : 7
     Route: 042
     Dates: start: 20100409, end: 20130717
  31. BEVACIZUMAB [Suspect]
     Active Substance: BEVACIZUMAB
     Dosage: COURSE ID : 11
     Route: 042
     Dates: start: 20100730, end: 20130717
  32. BEVACIZUMAB [Suspect]
     Active Substance: BEVACIZUMAB
     Dosage: COURSE ID : 20
     Route: 042
     Dates: start: 20110422
  33. BEVACIZUMAB [Suspect]
     Active Substance: BEVACIZUMAB
     Dosage: COURSE ID :23
     Route: 042
     Dates: start: 20110722
  34. TEMSIROLIMUS [Suspect]
     Active Substance: TEMSIROLIMUS
     Dosage: COURSE ID:3
     Route: 042
     Dates: start: 20091218, end: 20130717
  35. TEMSIROLIMUS [Suspect]
     Active Substance: TEMSIROLIMUS
     Dosage: COURSE ID:15
     Route: 042
     Dates: start: 20101119, end: 20130717
  36. TEMSIROLIMUS [Suspect]
     Active Substance: TEMSIROLIMUS
     Dosage: COURSE ID: 17
     Route: 042
     Dates: start: 20110128, end: 20130717
  37. TEMSIROLIMUS [Suspect]
     Active Substance: TEMSIROLIMUS
     Dosage: COURSE ID:25
     Route: 042
     Dates: start: 20110916
  38. TEMSIROLIMUS [Suspect]
     Active Substance: TEMSIROLIMUS
     Dosage: COURSE ID:36
     Route: 042
     Dates: start: 20120725
  39. TEMSIROLIMUS [Suspect]
     Active Substance: TEMSIROLIMUS
     Dosage: COURSE ID:39
     Route: 042
     Dates: start: 20121017
  40. TEMSIROLIMUS [Suspect]
     Active Substance: TEMSIROLIMUS
     Dosage: COURSE ID:46
     Route: 042
     Dates: start: 20130501
  41. BEVACIZUMAB [Suspect]
     Active Substance: BEVACIZUMAB
     Dosage: COURSE ID : 5
     Route: 042
     Dates: start: 20100212, end: 20130717
  42. BEVACIZUMAB [Suspect]
     Active Substance: BEVACIZUMAB
     Dosage: COURSE ID : 19
     Route: 042
     Dates: start: 20110325, end: 20130717
  43. BEVACIZUMAB [Suspect]
     Active Substance: BEVACIZUMAB
     Dosage: COURSE ID : 21
     Route: 042
     Dates: start: 20110520
  44. BEVACIZUMAB [Suspect]
     Active Substance: BEVACIZUMAB
     Dosage: COURSE ID : 26
     Route: 042
     Dates: start: 20111014
  45. TEMSIROLIMUS [Suspect]
     Active Substance: TEMSIROLIMUS
     Indication: MALIGNANT NEOPLASM OF ISLETS OF LANGERHANS
     Dosage: COURSE ID:1
     Route: 042
     Dates: start: 20091023, end: 20130717
  46. TEMSIROLIMUS [Suspect]
     Active Substance: TEMSIROLIMUS
     Dosage: COURSE ID:8
     Route: 042
     Dates: start: 20100507, end: 20130717
  47. TEMSIROLIMUS [Suspect]
     Active Substance: TEMSIROLIMUS
     Dosage: COURSE ID:26
     Route: 042
     Dates: start: 20111014
  48. TEMSIROLIMUS [Suspect]
     Active Substance: TEMSIROLIMUS
     Dosage: COURSE ID:27
     Route: 042
     Dates: start: 20111111
  49. TEMSIROLIMUS [Suspect]
     Active Substance: TEMSIROLIMUS
     Dosage: COURSE ID:30
     Route: 042
     Dates: start: 20120208
  50. TEMSIROLIMUS [Suspect]
     Active Substance: TEMSIROLIMUS
     Dosage: COURSE ID:44
     Route: 042
     Dates: start: 20130306
  51. TEMSIROLIMUS [Suspect]
     Active Substance: TEMSIROLIMUS
     Dosage: COURSE ID:48
     Route: 042
     Dates: start: 20130626
  52. BEVACIZUMAB [Suspect]
     Active Substance: BEVACIZUMAB
     Dosage: COURSE ID : 18
     Route: 042
     Dates: start: 20110225, end: 20130717
  53. TEMSIROLIMUS [Suspect]
     Active Substance: TEMSIROLIMUS
     Dosage: COURSE ID:2
     Route: 042
     Dates: start: 20091120, end: 20130717
  54. TEMSIROLIMUS [Suspect]
     Active Substance: TEMSIROLIMUS
     Dosage: COURSE ID: 5
     Route: 042
     Dates: start: 20100212, end: 20130717
  55. TEMSIROLIMUS [Suspect]
     Active Substance: TEMSIROLIMUS
     Dosage: COURSE ID: 9
     Route: 042
     Dates: start: 20100604, end: 20130717
  56. TEMSIROLIMUS [Suspect]
     Active Substance: TEMSIROLIMUS
     Dosage: COURSE ID:33
     Route: 042
     Dates: start: 20120502
  57. TEMSIROLIMUS [Suspect]
     Active Substance: TEMSIROLIMUS
     Dosage: COURSE ID:35
     Route: 042
     Dates: start: 20120627
  58. TEMSIROLIMUS [Suspect]
     Active Substance: TEMSIROLIMUS
     Dosage: COURSE ID:38
     Route: 042
     Dates: start: 20120919
  59. TEMSIROLIMUS [Suspect]
     Active Substance: TEMSIROLIMUS
     Dosage: COURSE ID:40
     Route: 042
     Dates: start: 20121114
  60. BEVACIZUMAB [Suspect]
     Active Substance: BEVACIZUMAB
     Dosage: COURSE ID : 9
     Route: 042
     Dates: start: 20100604, end: 20130717
  61. TEMSIROLIMUS [Suspect]
     Active Substance: TEMSIROLIMUS
     Dosage: COURSE ID: 19
     Route: 042
     Dates: start: 20110325, end: 20130717
  62. TEMSIROLIMUS [Suspect]
     Active Substance: TEMSIROLIMUS
     Dosage: COURSE ID:43
     Route: 042
     Dates: start: 20130206
  63. TEMSIROLIMUS [Suspect]
     Active Substance: TEMSIROLIMUS
     Dosage: COURSE ID:47
     Route: 042
     Dates: start: 20130529
  64. BEVACIZUMAB [Suspect]
     Active Substance: BEVACIZUMAB
     Dosage: COURSE ID : 3
     Route: 042
     Dates: start: 20091218, end: 20130717
  65. BEVACIZUMAB [Suspect]
     Active Substance: BEVACIZUMAB
     Dosage: COURSE ID : 6
     Route: 042
     Dates: start: 20100312, end: 20130717
  66. BEVACIZUMAB [Suspect]
     Active Substance: BEVACIZUMAB
     Dosage: COURSE ID : 12
     Route: 042
     Dates: start: 20100827, end: 20130717
  67. BEVACIZUMAB [Suspect]
     Active Substance: BEVACIZUMAB
     Dosage: COURSE ID : 13
     Route: 042
     Dates: start: 20100924, end: 20130717
  68. BEVACIZUMAB [Suspect]
     Active Substance: BEVACIZUMAB
     Dosage: COURSE ID : 15
     Route: 042
     Dates: start: 20101119, end: 20130717
  69. BEVACIZUMAB [Suspect]
     Active Substance: BEVACIZUMAB
     Dosage: COURSE ID : 18
     Route: 042
     Dates: start: 20110225, end: 20130717
  70. BEVACIZUMAB [Suspect]
     Active Substance: BEVACIZUMAB
     Dosage: COURSE ID :24
     Route: 042
     Dates: start: 20110819
  71. BEVACIZUMAB [Suspect]
     Active Substance: BEVACIZUMAB
     Dosage: COURSE ID : 27
     Route: 042
     Dates: start: 20111111
  72. TEMSIROLIMUS [Suspect]
     Active Substance: TEMSIROLIMUS
     Dosage: COURSE ID:6
     Route: 042
     Dates: start: 20100312, end: 20130717
  73. TEMSIROLIMUS [Suspect]
     Active Substance: TEMSIROLIMUS
     Dosage: COURSE ID:10
     Route: 042
     Dates: start: 20100702, end: 20130717
  74. TEMSIROLIMUS [Suspect]
     Active Substance: TEMSIROLIMUS
     Dosage: COURSE ID:14
     Route: 042
     Dates: start: 20101022, end: 20130717
  75. TEMSIROLIMUS [Suspect]
     Active Substance: TEMSIROLIMUS
     Dosage: COURSE ID: 16
     Route: 042
     Dates: start: 20101217, end: 20130717
  76. TEMSIROLIMUS [Suspect]
     Active Substance: TEMSIROLIMUS
     Dosage: COURSE ID: 20
     Route: 042
     Dates: start: 20110422, end: 20130717
  77. TEMSIROLIMUS [Suspect]
     Active Substance: TEMSIROLIMUS
     Dosage: COURSE ID:28
     Route: 042
     Dates: start: 20111214

REACTIONS (2)
  - Hypophosphataemia [Unknown]
  - Proteinuria [Unknown]
